FAERS Safety Report 11095389 (Version 9)
Quarter: 2015Q3

REPORT INFORMATION
  Report Type: Spontaneous
  Country: BE (occurrence: BE)
  Receive Date: 20150506
  Receipt Date: 20150731
  Transmission Date: 20151125
  Serious: Yes (Death, Hospitalization, Other)
  Sender: FDA-Public Use
  Company Number: BE-CELGENE-BEL-2015045878

PATIENT
  Age: 79 Year
  Sex: Male
  Weight: 96 kg

DRUGS (1)
  1. AZACITIDINE INJECTABLE [Suspect]
     Active Substance: AZACITIDINE
     Indication: MYELODYSPLASTIC SYNDROME
     Route: 058
     Dates: start: 20150305, end: 20150313

REACTIONS (4)
  - General physical health deterioration [Fatal]
  - Generalised oedema [Not Recovered/Not Resolved]
  - Enterobacter sepsis [Not Recovered/Not Resolved]
  - Asthenia [Fatal]

NARRATIVE: CASE EVENT DATE: 20150323
